FAERS Safety Report 9184094 (Version 1)
Quarter: 2013Q1

REPORT INFORMATION
  Report Type: Spontaneous
  Country: US (occurrence: US)
  Receive Date: 20130322
  Receipt Date: 20130322
  Transmission Date: 20140127
  Serious: Yes (Death)
  Sender: FDA-Public Use
  Company Number: US-BRISTOL-MYERS SQUIBB COMPANY-16446916

PATIENT
  Age: 55 Year
  Sex: Female

DRUGS (1)
  1. ERBITUX [Suspect]
     Indication: LIP AND/OR ORAL CAVITY CANCER
     Dosage: 12JAN2012 AND 19JAN2012 670MG LOADING DOSE AND 420MG
     Dates: start: 20120112

REACTIONS (1)
  - Death [Fatal]
